FAERS Safety Report 14364779 (Version 1)
Quarter: 2018Q1

REPORT INFORMATION
  Report Type: Report from Study
  Country: US (occurrence: US)
  Receive Date: 20180108
  Receipt Date: 20180108
  Transmission Date: 20180509
  Serious: No
  Sender: FDA-Public Use
  Company Number: US-RETROPHIN, INC.-2017RTN00106

PATIENT
  Sex: Female
  Weight: 71.66 kg

DRUGS (1)
  1. CHOLBAM [Suspect]
     Active Substance: CHOLIC ACID
     Indication: XANTHOMATOSIS
     Dosage: 750 MG, 1X/DAY
     Dates: start: 20140206

REACTIONS (2)
  - Abdominal pain upper [Unknown]
  - Cholelithiasis [Not Recovered/Not Resolved]

NARRATIVE: CASE EVENT DATE: 2017
